FAERS Safety Report 7589597-0 (Version None)
Quarter: 2011Q3

REPORT INFORMATION
  Report Type: 
  Country: None (occurrence: None)
  Receive Date: 20110705
  Receipt Date: 20110630
  Transmission Date: 20111222
  Serious: Yes (Hospitalization)
  Sender: FDA-Public Use
  Company Number: US-EISAI INC-E2080-00397-SPO-US

PATIENT
  Age: 11 Year
  Sex: Female

DRUGS (6)
  1. BANZEL [Suspect]
     Dosage: 400 MG
     Route: 065
     Dates: start: 20110101
  2. KEFLEX [Concomitant]
     Dosage: 5 ML
     Route: 065
  3. MIRALAX [Concomitant]
     Dosage: 1 CAPFUL
     Route: 065
  4. BACLOFEN [Concomitant]
     Route: 065
  5. POTASSIUM CHLORIDE [Concomitant]
  6. KLONOPIN [Concomitant]
     Route: 065

REACTIONS (2)
  - TYPE 2 DIABETES MELLITUS [None]
  - CONVULSION [None]
